FAERS Safety Report 7730817-7 (Version None)
Quarter: 2011Q3

REPORT INFORMATION
  Report Type: 
  Country: None (occurrence: None)
  Receive Date: 20110901
  Receipt Date: 20110901
  Transmission Date: 20111222
  Serious: Yes (Life-Threatening)
  Sender: FDA-Public Use
  Company Number: None

PATIENT
  Sex: Female
  Weight: 68.2 kg

DRUGS (1)
  1. CEROVITE ADVANCED FORM TAB RUGBY [Suspect]
     Indication: POSTOPERATIVE CARE
     Dosage: CEROVITE ADVANCED FORM TAB 1X ORALLY
     Route: 048

REACTIONS (1)
  - INTERNATIONAL NORMALISED RATIO DECREASED [None]
